FAERS Safety Report 4435090-3 (Version None)
Quarter: 2004Q3

REPORT INFORMATION
  Report Type: 
  Country: None (occurrence: None)
  Receive Date: 20040726
  Receipt Date: 20040225
  Transmission Date: 20050211
  Serious: No
  Sender: FDA-Public Use
  Company Number: USA040260245

PATIENT
  Age: 86 Year
  Sex: Male

DRUGS (6)
  1. FORTEO [Suspect]
     Indication: OSTEOPOROSIS
     Dates: start: 20040224
  2. LASIX [Concomitant]
  3. SPIRONOLACTONE [Concomitant]
  4. PROSCAR [Concomitant]
  5. PRILOSEC [Concomitant]
  6. CALCIUM [Concomitant]

REACTIONS (3)
  - BONE PAIN [None]
  - GROIN PAIN [None]
  - HEADACHE [None]
